FAERS Safety Report 7076371-7 (Version None)
Quarter: 2010Q4

REPORT INFORMATION
  Report Type: 
  Country: None (occurrence: None)
  Receive Date: 20101022
  Receipt Date: 20101007
  Transmission Date: 20110411
  Serious: Yes (Death, Other)
  Sender: FDA-Public Use
  Company Number: 011373

PATIENT
  Age: 10 Year

DRUGS (2)
  1. BUSULFEX [Suspect]
     Indication: STEM CELL TRANSPLANT
     Dosage: 5 MG/KG,
  2. CYCLOPHOSPHAMIDE [Concomitant]

REACTIONS (2)
  - LEUKAEMIA RECURRENT [None]
  - ORGAN FAILURE [None]
